FAERS Safety Report 25762325 (Version 1)
Quarter: 2025Q3

REPORT INFORMATION
  Report Type: Spontaneous
  Country: US (occurrence: None)
  Receive Date: 20250903
  Receipt Date: 20250903
  Transmission Date: 20251021
  Serious: Yes (Death)
  Sender: FDA-CTU
  Company Number: None

PATIENT
  Age: 80 Year
  Sex: Male

DRUGS (1)
  1. CEFTRIAXONE [Suspect]
     Active Substance: CEFTRIAXONE
     Indication: Sepsis
     Route: 040
     Dates: start: 20250803, end: 20250803

REACTIONS (3)
  - Fall [None]
  - Sepsis [None]
  - Encephalopathy [None]

NARRATIVE: CASE EVENT DATE: 20250803
